FAERS Safety Report 10046937 (Version 1)
Quarter: 2014Q1

REPORT INFORMATION
  Report Type: Spontaneous
  Country: US (occurrence: US)
  Receive Date: 20140331
  Receipt Date: 20140331
  Transmission Date: 20141002
  Serious: Yes (Death)
  Sender: FDA-Public Use
  Company Number: US-BAYER-2014-047084

PATIENT
  Sex: 0

DRUGS (2)
  1. MIRENA [Suspect]
     Dosage: UNK UNK, CONT
  2. DEPO PROVERA [Suspect]
     Dosage: UNK

REACTIONS (1)
  - Premature baby [Fatal]
